FAERS Safety Report 8914685 (Version 1)
Quarter: 2012Q4

REPORT INFORMATION
  Report Type: Report from Study
  Country: DE (occurrence: DE)
  Receive Date: 20121119
  Receipt Date: 20121119
  Transmission Date: 20130627
  Serious: Yes (Hospitalization)
  Sender: FDA-Public Use
  Company Number: DE-ROCHE-1016262

PATIENT
  Age: 24 Year
  Sex: Female
  Weight: 54 kg

DRUGS (6)
  1. TOCILIZUMAB [Suspect]
     Indication: RHEUMATOID ARTHRITIS
     Route: 042
     Dates: start: 20101125
  2. TOCILIZUMAB [Suspect]
     Route: 042
     Dates: start: 20110630
  3. TOCILIZUMAB [Suspect]
     Route: 042
     Dates: start: 20110805
  4. TOCILIZUMAB [Suspect]
     Route: 042
     Dates: start: 20110916
  5. TOCILIZUMAB [Suspect]
     Route: 042
     Dates: start: 20111011
  6. CORTICOSTEROIDS (UNK INGREDIENTS) [Concomitant]
     Indication: RHEUMATOID ARTHRITIS

REACTIONS (2)
  - Anal abscess [Not Recovered/Not Resolved]
  - Anal fistula [Not Recovered/Not Resolved]
